FAERS Safety Report 7179712-5 (Version None)
Quarter: 2010Q4

REPORT INFORMATION
  Report Type: 
  Country: None (occurrence: None)
  Receive Date: 20101221
  Receipt Date: 20101213
  Transmission Date: 20110411
  Serious: Yes (Other)
  Sender: FDA-Public Use
  Company Number: US-ROCHE-747817

PATIENT
  Sex: Female

DRUGS (2)
  1. BONIVA [Suspect]
     Indication: OSTEOPOROSIS
     Dosage: OTHER INDICATION: OSTEOPENIA
     Route: 065
     Dates: start: 20060101, end: 20090101
  2. FOSAMAX [Suspect]
     Indication: OSTEOPOROSIS
     Dosage: OTHER INDICATION: OSTEOPENIA
     Route: 065
     Dates: start: 19950101, end: 20060101

REACTIONS (3)
  - FEMUR FRACTURE [None]
  - LOW TURNOVER OSTEOPATHY [None]
  - STRESS FRACTURE [None]
